FAERS Safety Report 4407709-4 (Version None)
Quarter: 2004Q3

REPORT INFORMATION
  Report Type: 
  Country: None (occurrence: None)
  Receive Date: 20040726
  Receipt Date: 20040130
  Transmission Date: 20050211
  Serious: Yes (Hospitalization, Disabling, Other)
  Sender: FDA-Public Use
  Company Number: US-MERCK-0402USA00006

PATIENT
  Age: 33 Year
  Sex: Female

DRUGS (12)
  1. [THERAPY UNSPECIFIED] [Concomitant]
     Route: 065
     Dates: start: 20000424, end: 20011129
  2. TYLENOL [Concomitant]
     Route: 065
     Dates: start: 20000424, end: 20011129
  3. ORTHO-NOVUM [Concomitant]
     Indication: CONTRACEPTION
     Route: 065
  4. NECON [Concomitant]
     Indication: ORAL CONTRACEPTION
     Route: 065
  5. ADVIL [Concomitant]
     Route: 065
     Dates: start: 20000424, end: 20011129
  6. MOTRIN [Concomitant]
     Route: 065
     Dates: start: 20000424, end: 20011129
  7. METHYLPHENIDATE [Concomitant]
     Route: 065
  8. NAPROXEN [Concomitant]
     Route: 065
     Dates: start: 20000424, end: 20011129
  9. ALEVE [Concomitant]
     Route: 065
     Dates: start: 20000424, end: 20011129
  10. VIOXX [Suspect]
     Indication: TEMPOROMANDIBULAR JOINT SYNDROME
     Route: 048
     Dates: start: 20000907, end: 20010201
  11. VIOXX [Suspect]
     Route: 048
     Dates: start: 20010201, end: 20011201
  12. ZOLOFT [Concomitant]
     Route: 065

REACTIONS (8)
  - CEREBRAL INFARCTION [None]
  - CEREBROVASCULAR STENOSIS [None]
  - HEADACHE [None]
  - HYPERCHOLESTEROLAEMIA [None]
  - HYPERSENSITIVITY [None]
  - SINUSITIS [None]
  - TEMPOROMANDIBULAR JOINT SYNDROME [None]
  - TRANSIENT ISCHAEMIC ATTACK [None]
